FAERS Safety Report 26043751 (Version 1)
Quarter: 2025Q4

REPORT INFORMATION
  Report Type: Spontaneous
  Country: EU (occurrence: EU)
  Receive Date: 20251113
  Receipt Date: 20251113
  Transmission Date: 20260117
  Serious: Yes (Other)
  Sender: BAXTER
  Company Number: EU-MLMSERVICE-20251029-PI692170-00117-5

PATIENT
  Age: 33 Year
  Sex: Male

DRUGS (5)
  1. CYCLOPHOSPHAMIDE [Suspect]
     Active Substance: CYCLOPHOSPHAMIDE
     Indication: Peripheral T-cell lymphoma unspecified stage IV
     Dosage: UNK
     Route: 065
  2. DOXORUBICIN [Suspect]
     Active Substance: DOXORUBICIN
     Indication: Peripheral T-cell lymphoma unspecified stage IV
     Dosage: UNK
     Route: 065
  3. VINCRISTINE [Suspect]
     Active Substance: VINCRISTINE
     Indication: Peripheral T-cell lymphoma unspecified stage IV
     Dosage: UNK
     Route: 065
  4. PREDNISONE [Suspect]
     Active Substance: PREDNISONE
     Indication: Peripheral T-cell lymphoma unspecified stage IV
     Dosage: UNK
     Route: 065
  5. METHOTREXATE [Suspect]
     Active Substance: METHOTREXATE
     Indication: Peripheral T-cell lymphoma unspecified stage IV
     Dosage: 3 GRAM PER SQUARE METRE
     Route: 065

REACTIONS (11)
  - Diabetes insipidus [Unknown]
  - Polyuria [Unknown]
  - Metabolic disorder [Unknown]
  - Blood lactate dehydrogenase increased [Unknown]
  - Peripheral T-cell lymphoma unspecified stage IV [Unknown]
  - Disease progression [Unknown]
  - Lymphadenopathy [Unknown]
  - Hepatosplenomegaly [Unknown]
  - Multiple organ dysfunction syndrome [Unknown]
  - Hepatotoxicity [Unknown]
  - Cardiotoxicity [Unknown]
